FAERS Safety Report 4667327-X (Version None)
Quarter: 2005Q2

REPORT INFORMATION
  Report Type: 
  Country: None (occurrence: None)
  Receive Date: 20050502
  Receipt Date: 20041202
  Transmission Date: 20051028
  Serious: Yes (Hospitalization)
  Sender: FDA-Public Use
  Company Number: PHEH2004US12856

PATIENT
  Age: 62 Year
  Sex: Female
  Weight: 150 kg

DRUGS (2)
  1. LOTREL [Suspect]
     Indication: HYPERTENSION
     Dosage: 5 MG AMLOD/10 MG BENAZ QD
  2. CARDIZEM [Concomitant]

REACTIONS (1)
  - ANGIONEUROTIC OEDEMA [None]
